FAERS Safety Report 6639709-8 (Version None)
Quarter: 2010Q1

REPORT INFORMATION
  Report Type: 
  Country: None (occurrence: None)
  Receive Date: 20100318
  Receipt Date: 20100304
  Transmission Date: 20100710
  Serious: Yes (Other)
  Sender: FDA-Public Use
  Company Number: PHEH2010US02894

PATIENT
  Sex: Male

DRUGS (1)
  1. GENTEAL (NVO) [Suspect]
     Indication: EYE PAIN
     Dosage: UNK

REACTIONS (1)
  - CATARACT OPERATION [None]
